FAERS Safety Report 6156363-2 (Version None)
Quarter: 2009Q2

REPORT INFORMATION
  Report Type: 
  Country: None (occurrence: None)
  Receive Date: 20090415
  Receipt Date: 20090409
  Transmission Date: 20091009
  Serious: Yes (Hospitalization)
  Sender: FDA-Public Use
  Company Number: US-GILEAD-2008-0019614

PATIENT
  Sex: Female
  Weight: 97.61 kg

DRUGS (23)
  1. LETAIRIS [Suspect]
     Indication: PULMONARY ARTERIAL HYPERTENSION
     Route: 048
     Dates: start: 20080128
  2. VASOTEC [Concomitant]
  3. DIOVAN [Concomitant]
  4. LIPITOR [Concomitant]
  5. BUMEX [Concomitant]
  6. ADVAIR HFA [Concomitant]
  7. OXYGEN [Concomitant]
  8. XOPENEX [Concomitant]
  9. FLONASE [Concomitant]
  10. XOLAIR [Concomitant]
  11. DUONEB [Concomitant]
  12. OXYCONTIN [Concomitant]
  13. HYDROCORTISONE [Concomitant]
  14. PROTONIX [Concomitant]
  15. CELEBREX [Concomitant]
  16. ESTRATEST [Concomitant]
  17. PREDNISONE TAB [Concomitant]
  18. NEURONTIN [Concomitant]
  19. ZANTAC [Concomitant]
  20. CELEXA [Concomitant]
  21. MIRAPEX [Concomitant]
  22. DETROL LA [Concomitant]
  23. POTASSIUM CHLORIDE [Concomitant]

REACTIONS (4)
  - ACUTE RESPIRATORY FAILURE [None]
  - DIZZINESS [None]
  - NAUSEA [None]
  - RENAL FAILURE ACUTE [None]
